FAERS Safety Report 13008218 (Version 2)
Quarter: 2016Q4

REPORT INFORMATION
  Report Type: Spontaneous
  Country: JP (occurrence: JP)
  Receive Date: 20161208
  Receipt Date: 20161214
  Transmission Date: 20170207
  Serious: Yes (Other)
  Sender: FDA-Public Use
  Company Number: JP-009507513-1612JPN001625

PATIENT
  Age: 54 Year
  Sex: Male

DRUGS (4)
  1. THERAPY UNSPECIFIED [Suspect]
     Active Substance: UNSPECIFIED INGREDIENT
     Dosage: UNK
     Route: 048
  2. PEGINTERFERON ALFA-2B [Suspect]
     Active Substance: PEGINTERFERON ALFA-2B
     Dosage: UNK
  3. SIMEPREVIR [Suspect]
     Active Substance: SIMEPREVIR
     Dosage: UNK
     Route: 048
  4. COPEGUS [Suspect]
     Active Substance: RIBAVIRIN
     Dosage: UNK

REACTIONS (1)
  - Hepatocellular carcinoma [Unknown]
